FAERS Safety Report 9457242 (Version 2)
Quarter: 2013Q3

REPORT INFORMATION
  Report Type: Spontaneous
  Country: US (occurrence: US)
  Receive Date: 20130814
  Receipt Date: 20130909
  Transmission Date: 20140515
  Serious: No
  Sender: FDA-Public Use
  Company Number: US-009507513-1307USA016098

PATIENT
  Sex: 0

DRUGS (1)
  1. AZASITE [Suspect]
     Dosage: 2 GTT, QD
     Route: 031

REACTIONS (4)
  - Underdose [Unknown]
  - No adverse event [Unknown]
  - Off label use [Unknown]
  - Product packaging quantity issue [Unknown]
